FAERS Safety Report 13672926 (Version 3)
Quarter: 2018Q4

REPORT INFORMATION
  Report Type: Report from Study
  Country: US (occurrence: US)
  Receive Date: 20170621
  Receipt Date: 20181207
  Transmission Date: 20190204
  Serious: Yes (Hospitalization)
  Sender: FDA-Public Use
  Company Number: US-PFIZER INC-2017176563

PATIENT
  Age: 71 Year
  Sex: Male
  Weight: 133 kg

DRUGS (17)
  1. ASPIRIN /00002701/ [Concomitant]
     Active Substance: ASPIRIN
     Indication: CORONARY ARTERY DISEASE
     Dosage: 81 MG, 1X/DAY
     Route: 048
     Dates: start: 20160112
  2. CIPROFLAXINA HC LAZAR [Concomitant]
     Indication: PNEUMONIA
     Dosage: 500 MG, 2X/DAY
     Route: 048
     Dates: start: 20170407, end: 20170411
  3. OXALIPLATIN. [Suspect]
     Active Substance: OXALIPLATIN
     Indication: OESOPHAGEAL ADENOCARCINOMA
     Dosage: 210 MG, CYCLIC
     Route: 042
     Dates: start: 20160908, end: 20161117
  4. FLUOROURACIL. [Suspect]
     Active Substance: FLUOROURACIL
     Indication: OESOPHAGEAL ADENOCARCINOMA
     Dosage: 6400 MG, CYCLIC
     Route: 042
     Dates: start: 20160908, end: 20161117
  5. FUROSEMIDE. [Concomitant]
     Active Substance: FUROSEMIDE
     Indication: HYPERTENSION
     Dosage: 20 MG, 1X/DAY
     Route: 048
     Dates: start: 20140601
  6. OXALIPLATIN. [Suspect]
     Active Substance: OXALIPLATIN
     Dosage: 210 MG, CYCLIC
     Route: 042
     Dates: start: 20161229
  7. LEUCOVORIN /00566701/ [Concomitant]
     Active Substance: LEUCOVORIN
     Indication: OESOPHAGEAL ADENOCARCINOMA
     Dosage: 500 MG, WEEKLY
     Route: 042
     Dates: start: 20160908, end: 20170314
  8. OXALIPLATIN. [Suspect]
     Active Substance: OXALIPLATIN
     Dosage: 105 MG, CYCLIC
     Route: 042
     Dates: end: 20170314
  9. OMEPRAZOLE SODIUM [Concomitant]
     Active Substance: OMEPRAZOLE SODIUM
     Indication: GASTROOESOPHAGEAL REFLUX DISEASE
     Dosage: 20 MG, 1X/DAY
     Route: 048
     Dates: start: 20161230, end: 20170410
  10. FLUOROURACIL. [Suspect]
     Active Substance: FLUOROURACIL
     Dosage: 6400 MG, CYCLIC
     Route: 042
     Dates: start: 20161229, end: 20170314
  11. ONDANSETRON [Concomitant]
     Active Substance: ONDANSETRON
     Indication: PROPHYLAXIS OF NAUSEA AND VOMITING
     Dosage: 4 MG, AS NEEDED
     Route: 030
     Dates: start: 20170411, end: 20170417
  12. HEPARIN [Concomitant]
     Active Substance: HEPARIN SODIUM
     Indication: PNEUMONIA
     Dosage: UNK
  13. LOSARTAN. [Concomitant]
     Active Substance: LOSARTAN
     Indication: HYPERTENSION
     Dosage: 100 MG, 1X/DAY
     Route: 048
     Dates: start: 20160601, end: 20170414
  14. PREDNISONE. [Concomitant]
     Active Substance: PREDNISONE
     Indication: PNEUMONIA
     Dosage: UNK
  15. METFORMIN HYDROCHLORIDE. [Concomitant]
     Active Substance: METFORMIN HYDROCHLORIDE
     Indication: TYPE 2 DIABETES MELLITUS
     Dosage: 500 MG, 1X/DAY
     Route: 048
     Dates: start: 20130601, end: 20170411
  16. METFORMIN HYDROCHLORIDE. [Concomitant]
     Active Substance: METFORMIN HYDROCHLORIDE
     Dosage: 500 MG, 1X/DAY
     Route: 048
     Dates: start: 20170418
  17. CIPROFLAXINA HC LAZAR [Concomitant]
     Indication: PYREXIA
     Dosage: 500 MG, 2X/DAY
     Route: 048
     Dates: start: 20170124, end: 20170203

REACTIONS (1)
  - Acute respiratory failure [Recovered/Resolved]

NARRATIVE: CASE EVENT DATE: 20170411
